FAERS Safety Report 9170584 (Version 1)
Quarter: 2013Q1

REPORT INFORMATION
  Report Type: Spontaneous
  Country: GB (occurrence: None)
  Receive Date: 20130311
  Receipt Date: 20130311
  Transmission Date: 20140127
  Serious: Yes (Other)
  Sender: FDA-Public Use
  Company Number: AUR-APL-2013-02049

PATIENT
  Age: 24 Year
  Sex: Female

DRUGS (5)
  1. FLUOXETINE (FLUOXETINE) [Suspect]
     Indication: DEPRESSION
     Dates: start: 200610, end: 200710
  2. REBETOL (RIBAVIRIN) [Suspect]
     Indication: HEPATITIS
  3. INTERFERON ALFA-2B (INTERFERON ALFA-2B) [Suspect]
     Indication: HEPATITIS C
  4. SUBUTEX (BUPRENORPHINE HYDROCHLORIDE) [Suspect]
     Indication: DRUG DEPENDENCE
     Dosage: 16 MG (16 MG, 1 IN 1 D), ORAL
     Route: 048
  5. HEROIN (DIAMORPHINE) [Concomitant]

REACTIONS (3)
  - Exposure during pregnancy [None]
  - Abortion spontaneous [None]
  - Incorrect route of drug administration [None]
